FAERS Safety Report 8913366 (Version 5)
Quarter: 2014Q4

REPORT INFORMATION
  Report Type: Spontaneous
  Country: US (occurrence: US)
  Receive Date: 20121116
  Receipt Date: 20141224
  Transmission Date: 20150529
  Serious: Yes (Hospitalization, Other)
  Sender: FDA-Public Use
  Company Number: US-ASTRAZENECA-2012SE85477

PATIENT
  Age: 76 Year
  Sex: Female

DRUGS (10)
  1. NEXIUM [Suspect]
     Active Substance: ESOMEPRAZOLE MAGNESIUM
     Indication: HIATUS HERNIA
     Route: 048
  2. OTHER DRUGS [Concomitant]
     Active Substance: UNSPECIFIED INGREDIENT
  3. TOPROL XL [Suspect]
     Active Substance: METOPROLOL SUCCINATE
     Route: 048
  4. TOPROL XL [Suspect]
     Active Substance: METOPROLOL SUCCINATE
     Route: 048
  5. COUMADIN [Concomitant]
     Active Substance: WARFARIN SODIUM
  6. PRILOSEC [Suspect]
     Active Substance: OMEPRAZOLE MAGNESIUM
     Indication: HIATUS HERNIA
     Route: 048
  7. PRILOSEC OTC [Suspect]
     Active Substance: OMEPRAZOLE MAGNESIUM
     Route: 048
  8. NEXIUM [Suspect]
     Active Substance: ESOMEPRAZOLE MAGNESIUM
     Indication: HIATUS HERNIA
     Route: 048
  9. TIKOSYN [Concomitant]
     Active Substance: DOFETILIDE
     Indication: ATRIAL FIBRILLATION
  10. ASPIRIN. [Concomitant]
     Active Substance: ASPIRIN

REACTIONS (27)
  - Hiatus hernia [Unknown]
  - Discomfort [Unknown]
  - Atrial fibrillation [Unknown]
  - Ovarian cancer [Unknown]
  - Small intestinal obstruction [Unknown]
  - Pulmonary oedema [Unknown]
  - Diverticulum [Unknown]
  - Goitre [Unknown]
  - Dyspnoea [Unknown]
  - Dyspepsia [Unknown]
  - Drug ineffective [Unknown]
  - Gastrooesophageal reflux disease [Unknown]
  - Pharyngeal haemorrhage [Recovered/Resolved]
  - Haemoptysis [Recovered/Resolved]
  - Dysphagia [Recovered/Resolved]
  - Gastritis [Unknown]
  - Gastric disorder [Unknown]
  - Abdominal discomfort [Unknown]
  - Drug dose omission [Unknown]
  - Post procedural complication [Unknown]
  - Hypertension [Unknown]
  - Inguinal hernia [Unknown]
  - Cholelithiasis [Unknown]
  - Coronary artery disease [Unknown]
  - Pain [Unknown]
  - Abdominal hernia [Unknown]
  - Oesophagitis [Unknown]

NARRATIVE: CASE EVENT DATE: 1994
